FAERS Safety Report 17400021 (Version 1)
Quarter: 2020Q1

REPORT INFORMATION
  Report Type: Spontaneous
  Country: CA (occurrence: CA)
  Receive Date: 20200211
  Receipt Date: 20200211
  Transmission Date: 20200409
  Serious: Yes (Other)
  Sender: FDA-Public Use
  Company Number: CA-ORION CORPORATION ORION PHARMA-TREX2020-0741

PATIENT
  Sex: Female

DRUGS (10)
  1. HUMIRA [Suspect]
     Active Substance: ADALIMUMAB
     Indication: CROHN^S DISEASE
     Route: 058
  2. POTASSIUM [Concomitant]
     Active Substance: POTASSIUM
     Route: 065
  3. METHOTREXATE (TRADE NAME UNKNOWN) [Suspect]
     Active Substance: METHOTREXATE
     Indication: PRODUCT USED FOR UNKNOWN INDICATION
     Route: 065
  4. CODEINE [Suspect]
     Active Substance: CODEINE
     Route: 065
  5. CODEINE [Suspect]
     Active Substance: CODEINE
     Indication: PRODUCT USED FOR UNKNOWN INDICATION
     Route: 048
  6. CHOLESTYRAMINE. [Concomitant]
     Active Substance: CHOLESTYRAMINE
     Route: 065
  7. IMURAN [Concomitant]
     Active Substance: AZATHIOPRINE
     Route: 065
  8. PREDNISONE. [Concomitant]
     Active Substance: PREDNISONE
     Route: 065
  9. STELARA [Concomitant]
     Active Substance: USTEKINUMAB
     Route: 065
  10. IMODIUM [Concomitant]
     Active Substance: LOPERAMIDE HYDROCHLORIDE
     Route: 065

REACTIONS (24)
  - Inflammation [Not Recovered/Not Resolved]
  - Gallbladder disorder [Not Recovered/Not Resolved]
  - C-reactive protein increased [Not Recovered/Not Resolved]
  - Frequent bowel movements [Not Recovered/Not Resolved]
  - Incontinence [Not Recovered/Not Resolved]
  - Gastric disorder [Not Recovered/Not Resolved]
  - Arthropathy [Not Recovered/Not Resolved]
  - Breast cancer [Not Recovered/Not Resolved]
  - Weight decreased [Not Recovered/Not Resolved]
  - Lymphadenopathy [Not Recovered/Not Resolved]
  - Diarrhoea [Not Recovered/Not Resolved]
  - Abdominal pain lower [Not Recovered/Not Resolved]
  - Spinal cord disorder [Not Recovered/Not Resolved]
  - Ileal stenosis [Not Recovered/Not Resolved]
  - Suprapubic pain [Not Recovered/Not Resolved]
  - Renal cancer [Not Recovered/Not Resolved]
  - Sacroiliitis [Not Recovered/Not Resolved]
  - Anaphylactic reaction [Not Recovered/Not Resolved]
  - Appendicitis [Not Recovered/Not Resolved]
  - Drug hypersensitivity [Not Recovered/Not Resolved]
  - Intestinal fibrosis [Not Recovered/Not Resolved]
  - Nephrolithiasis [Not Recovered/Not Resolved]
  - Tonsillitis [Not Recovered/Not Resolved]
  - Back pain [Not Recovered/Not Resolved]
